FAERS Safety Report 8955085 (Version 1)
Quarter: 2012Q4

REPORT INFORMATION
  Report Type: 
  Country: US (occurrence: US)
  Receive Date: 20121210
  Receipt Date: 20121210
  Transmission Date: 20130627
  Serious: Yes (Hospitalization, Other)
  Sender: FDA-Public Use
  Company Number: US-AMGEN-USASP2012077937

PATIENT
  Sex: Male

DRUGS (4)
  1. PROCRIT [Suspect]
     Indication: LYME DISEASE
     Dosage: UNK
     Route: 058
     Dates: start: 20121021, end: 20121108
  2. BENADRYL                           /00000402/ [Suspect]
     Indication: URTICARIA
     Dosage: UNK
     Dates: start: 201211
  3. BENADRYL                           /00000402/ [Suspect]
     Indication: PRURITUS
  4. NYSTATIN [Suspect]
     Indication: FUNGAL INFECTION
     Dosage: UNK
     Dates: start: 201211

REACTIONS (14)
  - Cardiac disorder [Recovered/Resolved]
  - Blood pressure increased [Recovered/Resolved]
  - Palpitations [Recovered/Resolved]
  - Blood glucose decreased [Recovered/Resolved]
  - White blood cell count decreased [Not Recovered/Not Resolved]
  - Blood iron increased [Not Recovered/Not Resolved]
  - Dizziness [Recovered/Resolved]
  - Hypersensitivity [Not Recovered/Not Resolved]
  - Urticaria [Not Recovered/Not Resolved]
  - Pruritus [Not Recovered/Not Resolved]
  - Formication [Not Recovered/Not Resolved]
  - Red blood cell sedimentation rate increased [Not Recovered/Not Resolved]
  - Fungal infection [Not Recovered/Not Resolved]
  - Condition aggravated [Not Recovered/Not Resolved]
